FAERS Safety Report 13630289 (Version 1)
Quarter: 2017Q2

REPORT INFORMATION
  Report Type: Spontaneous
  Country: CH (occurrence: CH)
  Receive Date: 20170608
  Receipt Date: 20170608
  Transmission Date: 20170830
  Serious: Yes (Life-Threatening, Hospitalization)
  Sender: FDA-Public Use
  Company Number: CH-ALLERGAN-1723632US

PATIENT
  Age: 47 Year
  Sex: Female
  Weight: 77 kg

DRUGS (6)
  1. SIFROL [Suspect]
     Active Substance: PRAMIPEXOLE
     Indication: RESTLESS LEGS SYNDROME
     Dosage: 1 MG, QD
     Route: 048
     Dates: end: 201705
  2. SERTRALINE [Concomitant]
     Active Substance: SERTRALINE HYDROCHLORIDE
     Indication: DEPRESSION
     Route: 048
  3. CITALOPRAM HYDROBROMIDE - BP [Suspect]
     Active Substance: CITALOPRAM HYDROBROMIDE
     Indication: DEPRESSION
     Dosage: OVERDOSE: DOSE UNKNOWN
     Route: 048
     Dates: start: 20170510, end: 20170510
  4. TRUXAL DRAG?ES [Suspect]
     Active Substance: CHLORPROTHIXENE HYDROCHLORIDE
     Indication: DEPRESSION
     Dosage: OVERDOSE: DOSE UNKNOWN
     Route: 048
  5. STILNOX [Suspect]
     Active Substance: ZOLPIDEM TARTRATE
     Indication: SLEEP DISORDER
     Dosage: OVERDOSE: DOSE UNKNOWN
     Route: 048
  6. QUETIAPINE. [Concomitant]
     Active Substance: QUETIAPINE
     Indication: DEPRESSION
     Route: 048

REACTIONS (7)
  - Intentional overdose [Recovered/Resolved]
  - Agitation [Recovered/Resolved]
  - Rhabdomyolysis [Recovering/Resolving]
  - Altered state of consciousness [Recovered/Resolved]
  - Acute kidney injury [Recovered/Resolved]
  - Hepatic enzyme increased [None]
  - Electrocardiogram QT prolonged [Recovered/Resolved]

NARRATIVE: CASE EVENT DATE: 20170510
